FAERS Safety Report 16533475 (Version 1)
Quarter: 2019Q3

REPORT INFORMATION
  Report Type: Spontaneous
  Country: US (occurrence: US)
  Receive Date: 20190703
  Receipt Date: 20190703
  Transmission Date: 20191004
  Serious: Yes (Life-Threatening, Hospitalization, Disabling)
  Sender: FDA-Public Use
  Company Number: None

PATIENT
  Age: 63 Year
  Sex: Female
  Weight: 75.15 kg

DRUGS (11)
  1. LOVASTATIN. [Concomitant]
     Active Substance: LOVASTATIN
  2. SINGULAIR [Concomitant]
     Active Substance: MONTELUKAST SODIUM
  3. TYLENOL [Concomitant]
     Active Substance: ACETAMINOPHEN
  4. TRAZODONE [Concomitant]
     Active Substance: TRAZODONE HYDROCHLORIDE
  5. OMEPRAZOLE. [Concomitant]
     Active Substance: OMEPRAZOLE
  6. ZYRTEC [Concomitant]
     Active Substance: CETIRIZINE HYDROCHLORIDE
  7. CIMZIA [Suspect]
     Active Substance: CERTOLIZUMAB PEGOL
     Indication: RHEUMATOID ARTHRITIS
     Dates: start: 20160215, end: 20181009
  8. PROBIOTICS [Concomitant]
     Active Substance: PROBIOTICS NOS
  9. WELLBUTRIN XL [Concomitant]
     Active Substance: BUPROPION HYDROCHLORIDE
  10. LEXAPRO [Concomitant]
     Active Substance: ESCITALOPRAM OXALATE
  11. VITAMIN D [Concomitant]
     Active Substance: VITAMIN D NOS

REACTIONS (16)
  - Osteomyelitis [None]
  - Hypertension [None]
  - Cataract [None]
  - Cellulitis [None]
  - Sepsis [None]
  - Cardiac failure congestive [None]
  - Back pain [None]
  - Renal failure [None]
  - Surgical procedure repeated [None]
  - Retinal detachment [None]
  - Haemorrhage [None]
  - Staphylococcal infection [None]
  - Pulmonary oedema [None]
  - Hepatic failure [None]
  - Intervertebral disc protrusion [None]
  - Abscess [None]

NARRATIVE: CASE EVENT DATE: 20181018
